FAERS Safety Report 4471612-4 (Version None)
Quarter: 2004Q4

REPORT INFORMATION
  Report Type: 
  Country: None (occurrence: None)
  Receive Date: 20041012
  Receipt Date: 20041005
  Transmission Date: 20050328
  Serious: Yes (Other)
  Sender: FDA-Public Use
  Company Number: US-JNJFOC-20040306583

PATIENT
  Sex: Male

DRUGS (15)
  1. DURAGESIC [Suspect]
     Route: 062
  2. DURAGESIC [Suspect]
     Route: 062
  3. DURAGESIC [Suspect]
     Route: 062
  4. DURAGESIC [Suspect]
     Route: 062
  5. DURAGESIC [Suspect]
     Route: 062
  6. DURAGESIC [Suspect]
     Route: 062
  7. DURAGESIC [Suspect]
     Route: 062
  8. DURAGESIC [Suspect]
     Route: 062
  9. PERCOCET [Suspect]
     Route: 049
  10. PERCOCET [Suspect]
     Indication: PAIN
     Dosage: 5/325 MG
     Route: 049
  11. KLONOPIN [Suspect]
     Indication: DRUG USE FOR UNKNOWN INDICATION
  12. PAXIL [Concomitant]
  13. ALBUTEROL [Concomitant]
  14. FLUTICASONE PROPIONATE [Concomitant]
  15. AZITHROMYCIN [Concomitant]

REACTIONS (12)
  - CONFUSIONAL STATE [None]
  - CYANOSIS [None]
  - DIZZINESS [None]
  - DRUG SCREEN POSITIVE [None]
  - LOSS OF CONSCIOUSNESS [None]
  - MEDICATION ERROR [None]
  - NEUROLOGICAL SYMPTOM [None]
  - OVERDOSE [None]
  - OXYGEN SATURATION DECREASED [None]
  - REFUSAL OF TREATMENT BY PATIENT [None]
  - SINUS TACHYCARDIA [None]
  - WHEEZING [None]
